FAERS Safety Report 8587830-X (Version None)
Quarter: 2012Q3

REPORT INFORMATION
  Report Type: 
  Country: None (occurrence: None)
  Receive Date: 20120813
  Receipt Date: 20120731
  Transmission Date: 20120928
  Serious: No
  Sender: FDA-Public Use
  Company Number: US-BIOGENIDEC-2012BI020494

PATIENT
  Sex: Female

DRUGS (2)
  1. TYSABRI [Suspect]
     Indication: MULTIPLE SCLEROSIS
     Route: 042
     Dates: start: 20110926, end: 20111024
  2. AVONEX [Concomitant]
     Indication: MULTIPLE SCLEROSIS
     Route: 030
     Dates: start: 20011005

REACTIONS (7)
  - THYROID DISORDER [None]
  - INSOMNIA [None]
  - EXOPHTHALMOS [None]
  - DYSPHAGIA [None]
  - NASAL DISCOMFORT [None]
  - AMENORRHOEA [None]
  - DEHYDRATION [None]
